FAERS Safety Report 6274357-3 (Version None)
Quarter: 2009Q3

REPORT INFORMATION
  Report Type: 
  Country: None (occurrence: None)
  Receive Date: 20090720
  Receipt Date: 20090708
  Transmission Date: 20100115
  Serious: Yes (Death, Hospitalization, Other)
  Sender: FDA-Public Use
  Company Number: PL-MEDIMMUNE-MEDI-0008453

PATIENT
  Sex: Female
  Weight: 3.2 kg

DRUGS (1)
  1. SYNAGIS [Suspect]
     Indication: BRONCHOPULMONARY DYSPLASIA
     Route: 030
     Dates: start: 20081218, end: 20090119

REACTIONS (4)
  - PNEUMONIA [None]
  - PREMATURE BABY [None]
  - PULMONARY HYPERTENSION [None]
  - RESPIRATORY FAILURE [None]
